FAERS Safety Report 7657593-0 (Version None)
Quarter: 2011Q3

REPORT INFORMATION
  Report Type: 
  Country: None (occurrence: None)
  Receive Date: 20110804
  Receipt Date: 20110725
  Transmission Date: 20111222
  Serious: Yes (Other)
  Sender: FDA-Public Use
  Company Number: US-AMGEN-USASP2011036810

PATIENT
  Age: 55 Year
  Sex: Female

DRUGS (1)
  1. ENBREL [Suspect]
     Indication: RHEUMATOID ARTHRITIS
     Dosage: 50 MG, QWK
     Dates: start: 20070901

REACTIONS (8)
  - POST PROCEDURAL HAEMORRHAGE [None]
  - JOINT STIFFNESS [None]
  - HAEMORRHAGE [None]
  - ARTHRALGIA [None]
  - SINUSITIS [None]
  - BLADDER REPAIR [None]
  - HYPERTONIC BLADDER [None]
  - OEDEMA PERIPHERAL [None]
